FAERS Safety Report 7272291-3 (Version None)
Quarter: 2011Q1

REPORT INFORMATION
  Report Type: 
  Country: None (occurrence: None)
  Receive Date: 20110203
  Receipt Date: 20110124
  Transmission Date: 20110831
  Serious: Yes (Hospitalization)
  Sender: FDA-Public Use
  Company Number: PHHY2009CA42626

PATIENT
  Sex: Female

DRUGS (1)
  1. EXJADE [Suspect]
     Indication: ANAEMIA
     Dosage: 1750 MG, UNK
     Route: 048
     Dates: start: 20090810

REACTIONS (3)
  - INFECTION [None]
  - DIARRHOEA [None]
  - MALAISE [None]
